FAERS Safety Report 7677008-6 (Version None)
Quarter: 2011Q3

REPORT INFORMATION
  Report Type: 
  Country: None (occurrence: None)
  Receive Date: 20110811
  Receipt Date: 20110802
  Transmission Date: 20111222
  Serious: Yes (Other)
  Sender: FDA-Public Use
  Company Number: US-NOVOPROD-332943

PATIENT
  Sex: Male
  Weight: 72.562 kg

DRUGS (5)
  1. PREDNISONE [Concomitant]
     Indication: OEDEMA PERIPHERAL
     Dosage: 5 MG, QD
     Route: 048
  2. PRILOSEC [Concomitant]
     Indication: GASTROOESOPHAGEAL REFLUX DISEASE
     Dosage: BID
     Route: 048
  3. METFORMIN HYDROCHLORIDE [Concomitant]
     Indication: TYPE 2 DIABETES MELLITUS
     Dosage: UNKNOWN
     Route: 048
  4. NOVOLOG MIX 70/30 [Suspect]
     Indication: TYPE 2 DIABETES MELLITUS
     Dosage: 3-4 TIMES PER DAY
     Route: 058
     Dates: start: 20060101
  5. PREDNISONE [Concomitant]
     Dosage: 10 MG, QD
     Route: 048

REACTIONS (6)
  - FALL [None]
  - HEAD INJURY [None]
  - BLOOD GLUCOSE DECREASED [None]
  - SCRATCH [None]
  - RIB FRACTURE [None]
  - PRODUCT QUALITY ISSUE [None]
